FAERS Safety Report 9949877 (Version 1)
Quarter: 2014Q1

REPORT INFORMATION
  Report Type: Spontaneous
  Country: US (occurrence: US)
  Receive Date: 20140304
  Receipt Date: 20140304
  Transmission Date: 20141002
  Serious: No
  Sender: FDA-Public Use
  Company Number: US-ABBVIE-13P-163-1066334-00

PATIENT
  Age: 21 Year
  Sex: Female
  Weight: 86.26 kg

DRUGS (4)
  1. HUMIRA [Suspect]
     Indication: PSORIASIS
     Dates: start: 2009
  2. HUMIRA [Suspect]
     Dates: start: 201202, end: 201206
  3. ADVIL [Concomitant]
     Indication: PRODUCT USED FOR UNKNOWN INDICATION
  4. TYLENOL [Concomitant]
     Indication: PRODUCT USED FOR UNKNOWN INDICATION

REACTIONS (1)
  - Drug ineffective [Not Recovered/Not Resolved]
